FAERS Safety Report 22264661 (Version 3)
Quarter: 2023Q2

REPORT INFORMATION
  Report Type: Spontaneous
  Country: US (occurrence: US)
  Receive Date: 20230428
  Receipt Date: 20230628
  Transmission Date: 20230722
  Serious: Yes (Hospitalization)
  Sender: FDA-Public Use
  Company Number: US-BRISTOL-MYERS SQUIBB COMPANY-2023-060498

PATIENT
  Age: 78 Year
  Sex: Male

DRUGS (2)
  1. REVLIMID [Suspect]
     Active Substance: LENALIDOMIDE
     Indication: Plasma cell myeloma
     Dosage: TAKE 5MG BY MOUTH DAILY FOR 21 DAYS
     Route: 048
     Dates: start: 20130525
  2. REVLIMID [Suspect]
     Active Substance: LENALIDOMIDE
     Dosage: TAKE 5MG BY MOUTH DAILY FOR 21 DAYS
     Route: 048
     Dates: start: 20230327

REACTIONS (3)
  - Gout [Recovering/Resolving]
  - Product dose omission issue [Unknown]
  - Full blood count decreased [Recovering/Resolving]
